FAERS Safety Report 8787815 (Version 1)
Quarter: 2012Q4

REPORT INFORMATION
  Report Type: 
  Country: VN (occurrence: VN)
  Receive Date: 20120914
  Receipt Date: 20120914
  Transmission Date: 20130627
  Serious: Yes (Death)
  Sender: FDA-Public Use
  Company Number: PHHY2009VN071161

PATIENT
  Sex: Female

DRUGS (1)
  1. GLIVEC [Suspect]
     Dosage: UNK
     Dates: start: 20090407

REACTIONS (3)
  - Neoplasm progression [Fatal]
  - Malignant neoplasm progression [Fatal]
  - Gastrointestinal haemorrhage [Fatal]
